FAERS Safety Report 9226922 (Version 1)
Quarter: 2013Q2

REPORT INFORMATION
  Report Type: Spontaneous
  Country: US (occurrence: None)
  Receive Date: 20130410
  Receipt Date: 20130410
  Transmission Date: 20140414
  Serious: Yes (Hospitalization)
  Sender: FDA-Public Use
  Company Number: None

PATIENT
  Age: 1 Year
  Sex: Male
  Weight: 14 kg

DRUGS (4)
  1. METHOTREXATE [Suspect]
  2. VINCRISTINE SULFATE [Suspect]
  3. G-CSF [Suspect]
  4. LEUCOVORIN CALCIUM [Suspect]

REACTIONS (12)
  - Vomiting [None]
  - Infusion related reaction [None]
  - Respiratory rate increased [None]
  - Abdominal distension [None]
  - Respiratory distress [None]
  - Renal failure acute [None]
  - Metabolic acidosis [None]
  - Hepatic failure [None]
  - Hypoxia [None]
  - Mental status changes [None]
  - Hypertension [None]
  - Bradycardia [None]
